FAERS Safety Report 5590205-9 (Version None)
Quarter: 2008Q1

REPORT INFORMATION
  Report Type: 
  Country: None (occurrence: None)
  Receive Date: 20080114
  Receipt Date: 20080107
  Transmission Date: 20080703
  Serious: Yes (Hospitalization)
  Sender: FDA-Public Use
  Company Number: US-ASTRAZENECA-2008UW00472

PATIENT
  Age: 809 Month
  Sex: Female
  Weight: 75.4 kg

DRUGS (2)
  1. FASLODEX [Suspect]
     Indication: BREAST CANCER METASTATIC
     Dosage: 500 MG IM ON DAY 1, 250 MG ON DAY 14, 250 MG ON DAY 28 THEN 250 MG IM EVERY 28 DAYS
     Route: 030
     Dates: start: 20060920
  2. ARIMIDEX [Suspect]
     Indication: BREAST CANCER METASTATIC
     Route: 048
     Dates: start: 20060920

REACTIONS (1)
  - HIP FRACTURE [None]
